FAERS Safety Report 7571527-9 (Version None)
Quarter: 2011Q2

REPORT INFORMATION
  Report Type: 
  Country: None (occurrence: None)
  Receive Date: 20110624
  Receipt Date: 20110610
  Transmission Date: 20111010
  Serious: Yes (Other)
  Sender: FDA-Public Use
  Company Number: JP-JNJFOC-20110506332

PATIENT
  Age: 34 Year
  Sex: Female

DRUGS (4)
  1. CYCLOSPORINE [Suspect]
     Indication: PSORIATIC ARTHROPATHY
     Dates: start: 20091101
  2. RETINOID PRODUCTS [Suspect]
     Indication: PSORIATIC ARTHROPATHY
  3. REMICADE [Suspect]
     Indication: BEHCET'S SYNDROME
     Dosage: 3 DOSES
     Route: 042
     Dates: start: 20100801
  4. METHOTREXATE [Suspect]
     Indication: PSORIATIC ARTHROPATHY
     Dates: start: 20091101

REACTIONS (1)
  - PNEUMONIA CRYPTOCOCCAL [None]
